FAERS Safety Report 5253370-9 (Version None)
Quarter: 2007Q1

REPORT INFORMATION
  Report Type: 
  Country: None (occurrence: None)
  Receive Date: 20070301
  Receipt Date: 20070222
  Transmission Date: 20070707
  Serious: Yes (Life-Threatening, Hospitalization)
  Sender: FDA-Public Use
  Company Number: HQWYE580123FEB07

PATIENT
  Age: 49 Year
  Sex: Male

DRUGS (11)
  1. CORDARONE [Suspect]
     Indication: ATRIAL FIBRILLATION
     Dosage: 50 MG/ML; DOSE AND FREQUENCY UNKNOWN
     Route: 042
     Dates: start: 20070121, end: 20070127
  2. MIDAZOLAM HCL [Concomitant]
     Dosage: UNKNOWN
     Route: 042
  3. INIPOMP [Concomitant]
     Dosage: UNKNOWN
     Route: 042
  4. CALCIPARINE [Concomitant]
     Dosage: UNKNOWN
     Route: 042
  5. CEFTRIAXONE [Concomitant]
     Dosage: UNKNOWN
     Route: 042
  6. PERFALGAN [Concomitant]
     Dosage: UNKNOWN
     Route: 042
  7. HYDROCORTISONE [Concomitant]
     Dosage: UNKNOWN
     Route: 042
  8. SUFENTANIL CITRATE [Concomitant]
     Dosage: UNKNOWN
     Route: 042
  9. TAVANIC [Interacting]
     Indication: LUNG DISORDER
     Route: 042
     Dates: start: 20070119, end: 20070129
  10. TAVANIC [Interacting]
     Indication: PNEUMONIA
  11. NOREPINEPHRINE BITARTRATE [Concomitant]
     Dosage: UNKNOWN
     Route: 042

REACTIONS (4)
  - DRUG INTERACTION [None]
  - TORSADE DE POINTES [None]
  - VENTRICULAR FIBRILLATION [None]
  - VENTRICULAR TACHYCARDIA [None]
